FAERS Safety Report 5023762-1 (Version None)
Quarter: 2006Q2

REPORT INFORMATION
  Report Type: 
  Country: None (occurrence: None)
  Receive Date: 20060612
  Receipt Date: 20060529
  Transmission Date: 20061013
  Serious: Yes (Other)
  Sender: FDA-Public Use
  Company Number: GB-NOVOPROD-253904

PATIENT
  Age: 18 Year
  Sex: Female

DRUGS (1)
  1. NOVOMIX 30 [Suspect]
     Indication: DIABETES MELLITUS INSULIN-DEPENDENT
     Dosage: 26+30+28

REACTIONS (1)
  - CATARACT DIABETIC [None]
